FAERS Safety Report 8246341-1 (Version None)
Quarter: 2012Q1

REPORT INFORMATION
  Report Type: 
  Country: None (occurrence: None)
  Receive Date: 20120329
  Receipt Date: 20120329
  Transmission Date: 20120608
  Serious: No
  Sender: FDA-Public Use
  Company Number: None

PATIENT
  Sex: Female
  Weight: 58.514 kg

DRUGS (1)
  1. VENLAFAXINE HYDROCHLORIDE [Suspect]
     Indication: AFFECTIVE DISORDER
     Dates: start: 20100601, end: 20110401

REACTIONS (6)
  - ANXIETY [None]
  - PRODUCT SUBSTITUTION ISSUE [None]
  - NIGHT SWEATS [None]
  - UTERINE HAEMORRHAGE [None]
  - TENSION HEADACHE [None]
  - CONDITION AGGRAVATED [None]
